FAERS Safety Report 19273666 (Version 1)
Quarter: 2021Q2

REPORT INFORMATION
  Report Type: Spontaneous
  Country: US (occurrence: US)
  Receive Date: 20210518
  Receipt Date: 20210518
  Transmission Date: 20210717
  Serious: Yes (Other)
  Sender: FDA-Public Use
  Company Number: None

PATIENT
  Age: 67 Year
  Sex: Female

DRUGS (18)
  1. METHOTREXATE. [Concomitant]
     Active Substance: METHOTREXATE
  2. DOCUSATE [Concomitant]
     Active Substance: DOCUSATE
  3. MAGNESIUM [Concomitant]
     Active Substance: MAGNESIUM
  4. POTASSIUM [Concomitant]
     Active Substance: POTASSIUM
  5. FOLIC ACID. [Concomitant]
     Active Substance: FOLIC ACID
  6. AMITRIPLTYLINE [Concomitant]
  7. MULTIVITAMINS [Concomitant]
     Active Substance: VITAMINS
  8. COSENTYX [Suspect]
     Active Substance: SECUKINUMAB
     Indication: PSORIASIS
     Dosage: ?          OTHER FREQUENCY:EVERY 4 WEEKS;?
     Route: 058
     Dates: start: 20200322, end: 20210516
  9. GABAPENTIN. [Concomitant]
     Active Substance: GABAPENTIN
  10. HYDROCODONE [Concomitant]
     Active Substance: HYDROCODONE
  11. CALCIUM [Concomitant]
     Active Substance: CALCIUM
  12. CYCLOBENZAPRINE. [Concomitant]
     Active Substance: CYCLOBENZAPRINE
  13. FUROSEMIDE. [Concomitant]
     Active Substance: FUROSEMIDE
  14. METOPROLOL. [Concomitant]
     Active Substance: METOPROLOL
  15. VITAMIN D [Concomitant]
     Active Substance: VITAMIN D NOS
  16. ZOLPIDEM [Concomitant]
     Active Substance: ZOLPIDEM TARTRATE
  17. PANTOPRAZOLE [Concomitant]
     Active Substance: PANTOPRAZOLE
  18. ZYRTEC [Concomitant]
     Active Substance: CETIRIZINE HYDROCHLORIDE

REACTIONS (2)
  - Nail bed disorder [None]
  - Alopecia [None]

NARRATIVE: CASE EVENT DATE: 20210518
